FAERS Safety Report 8600857-4 (Version None)
Quarter: 2012Q3

REPORT INFORMATION
  Report Type: 
  Country: None (occurrence: None)
  Receive Date: 20120805
  Receipt Date: 20120727
  Transmission Date: 20120928
  Serious: Yes (Hospitalization, Other)
  Sender: FDA-Public Use
  Company Number: AUR-APL-2012-03294

PATIENT
  Age: 42 Year
  Sex: Male

DRUGS (2)
  1. AUGMENTIN '125' [Suspect]
     Indication: TOOTH ABSCESS
     Dates: start: 20120711
  2. CEFTRIAXONE [Suspect]
     Indication: TOOTH ABSCESS
     Dosage: 1 GRAM/TOTAL, INTRAMUSCULAR
     Route: 030
     Dates: start: 20120711, end: 20120711

REACTIONS (2)
  - HYPERHIDROSIS [None]
  - SYNCOPE [None]
